FAERS Safety Report 7673025-0 (Version None)
Quarter: 2011Q3

REPORT INFORMATION
  Report Type: 
  Country: None (occurrence: None)
  Receive Date: 20110809
  Receipt Date: 20110802
  Transmission Date: 20111222
  Serious: Yes (Other)
  Sender: FDA-Public Use
  Company Number: PHHY2011BR70437

PATIENT
  Sex: Male

DRUGS (18)
  1. ATENOLOL [Concomitant]
     Dosage: 1 DF, AT MORNING
  2. SERTRALINE HYDROCHLORIDE [Concomitant]
     Dosage: 50 MG, UNK
  3. ACETYLSALICYLIC ACID SRT [Concomitant]
     Dosage: 100 MG, UNK
  4. OMEPRAZOLE [Concomitant]
     Dosage: 20 MG, UNK
  5. HYDRALAZINE HCL [Concomitant]
     Dosage: 3 DF, QD
  6. BUFFERIN CARDIO [Concomitant]
     Dosage: 2 DF, QD
  7. RASILEZ (ALISKIREN) [Concomitant]
     Dosage: 1 DF, AT NIGHT
  8. NIFEDIPINE [Suspect]
  9. MONOCORDIL [Concomitant]
     Dosage: 50 MG, QD
  10. FENOFIBRATE [Concomitant]
     Dosage: 1 DF, AT NIGHT
  11. LOSARTAN POTASSIUM [Suspect]
  12. EXFORGE [Concomitant]
     Dosage: 1 DF, AT MORNING
  13. AMLODIPINE BESYLATE [Concomitant]
     Dosage: 5 MG, UNK
  14. DIOVAN HCT [Concomitant]
     Dosage: 320 MG, UNK
  15. GALVUS MET [Concomitant]
     Dosage: 2 DF, QD
  16. VYTORIN [Concomitant]
     Dosage: 1 DF, AT NIGHT
  17. CLONAZEPAM [Concomitant]
     Dosage: 2 MG, QD
  18. CAPTOPRIL [Suspect]

REACTIONS (3)
  - HAEMORRHAGIC STROKE [None]
  - ISCHAEMIC STROKE [None]
  - BLOOD PRESSURE INCREASED [None]
